FAERS Safety Report 5218231-X (Version None)
Quarter: 2007Q1

REPORT INFORMATION
  Report Type: 
  Country: None (occurrence: None)
  Receive Date: 20070124
  Receipt Date: 20070102
  Transmission Date: 20070707
  Serious: Yes (Other)
  Sender: FDA-Public Use
  Company Number: US-PFIZER INC-2005079319

PATIENT
  Sex: Male
  Weight: 112.5 kg

DRUGS (1)
  1. BEXTRA [Suspect]
     Indication: INTERVERTEBRAL DISC PROTRUSION
     Dates: start: 20040419, end: 20040530

REACTIONS (6)
  - BACK PAIN [None]
  - CEREBROVASCULAR ACCIDENT [None]
  - DEPRESSION [None]
  - LOSS OF CONSCIOUSNESS [None]
  - THROMBOCYTOPENIA [None]
  - VISUAL DISTURBANCE [None]
